FAERS Safety Report 4609989-9 (Version None)
Quarter: 2005Q1

REPORT INFORMATION
  Report Type: 
  Country: None (occurrence: None)
  Receive Date: 20050316
  Receipt Date: 20050307
  Transmission Date: 20050727
  Serious: Yes (Other)
  Sender: FDA-Public Use
  Company Number: PHFR2005GB01116

PATIENT
  Age: 53 Year
  Sex: Male
  Weight: 108 kg

DRUGS (1)
  1. TERBINAFINE HCL [Suspect]
     Indication: ONYCHOMYCOSIS
     Dosage: 250 MG, QD
     Route: 048
     Dates: start: 20041105, end: 20041231

REACTIONS (5)
  - BLOOD CREATININE ABNORMAL [None]
  - BLOOD ELECTROLYTES ABNORMAL [None]
  - BLOOD PRESSURE INCREASED [None]
  - BLOOD UREA ABNORMAL [None]
  - RENAL IMPAIRMENT [None]
